FAERS Safety Report 10539974 (Version 1)
Quarter: 2014Q4

REPORT INFORMATION
  Report Type: Spontaneous
  Country: US (occurrence: None)
  Receive Date: 20141023
  Receipt Date: 20141023
  Transmission Date: 20150529
  Serious: Yes (Hospitalization)
  Sender: FDA-Public Use
  Company Number: None

PATIENT
  Age: 83 Year
  Sex: Female
  Weight: 58.51 kg

DRUGS (10)
  1. BIOTIN [Concomitant]
     Active Substance: BIOTIN
  2. OMEPRAZOLE. [Concomitant]
     Active Substance: OMEPRAZOLE
  3. ASPIRIN. [Concomitant]
     Active Substance: ASPIRIN
  4. FISH-OIL [Concomitant]
  5. COCONUT OIL [Concomitant]
     Active Substance: COCONUT OIL
  6. STOOL SOFTNER [Concomitant]
  7. METAMUCIL [Concomitant]
     Active Substance: PLANTAGO SEED
  8. VITAMIN E [Concomitant]
     Active Substance: .ALPHA.-TOCOPHEROL
  9. CALCIUM +D [Concomitant]
     Active Substance: CALCIUM\VITAMIN D
  10. IRBESARTAN. [Suspect]
     Active Substance: IRBESARTAN
     Indication: HYPERTENSION
     Dosage: MAY

REACTIONS (9)
  - Heart rate irregular [None]
  - Dizziness [None]
  - Cough [None]
  - Blood pressure increased [None]
  - Back pain [None]
  - Urinary tract infection [None]
  - Head discomfort [None]
  - Pain in extremity [None]
  - Hyponatraemia [None]
